FAERS Safety Report 8142167-8 (Version None)
Quarter: 2012Q1

REPORT INFORMATION
  Report Type: 
  Country: None (occurrence: None)
  Receive Date: 20120216
  Receipt Date: 20120207
  Transmission Date: 20120608
  Serious: Yes (Hospitalization)
  Sender: FDA-Public Use
  Company Number: IT-JNJFOC-20111004061

PATIENT
  Sex: Female
  Weight: 70 kg

DRUGS (6)
  1. PALIPERIDONE PALMITATE [Suspect]
     Route: 030
     Dates: start: 20110826
  2. PALIPERIDONE PALMITATE [Suspect]
     Route: 030
     Dates: start: 20110627
  3. PALIPERIDONE PALMITATE [Suspect]
     Route: 030
     Dates: start: 20110926
  4. BISOPROLOL FUMARATE [Concomitant]
     Indication: ARRHYTHMIA
  5. PALIPERIDONE PALMITATE [Suspect]
     Indication: SCHIZOPHRENIA
     Route: 030
     Dates: start: 20110620
  6. PALIPERIDONE PALMITATE [Suspect]
     Route: 030
     Dates: start: 20110726

REACTIONS (1)
  - ANXIETY [None]
